FAERS Safety Report 7078552-5 (Version None)
Quarter: 2010Q4

REPORT INFORMATION
  Report Type: 
  Country: None (occurrence: None)
  Receive Date: 20101101
  Receipt Date: 20101101
  Transmission Date: 20110411
  Serious: Yes (Death)
  Sender: FDA-Public Use
  Company Number: None

PATIENT
  Age: 15 Year
  Sex: Male
  Weight: 5.4432 kg

DRUGS (3)
  1. PROCRIT 2000U/ML 25X1ML CENTOCOR ORTHO BIOTECH INC. 02-143 [Suspect]
     Indication: HYPERTENSION
     Dosage: 2000U/ML 25X1ML
     Dates: start: 20090101, end: 20090401
  2. PROCRIT 2000U/ML 25X1ML CENTOCOR ORTHO BIOTECH INC. 02-143 [Suspect]
     Indication: RENAL DISORDER
     Dosage: 2000U/ML 25X1ML
     Dates: start: 20090101, end: 20090401
  3. PROCRIT 2000U/ML 25X1ML CENTOCOR ORTHO BIOTECH INC. 02-143 [Suspect]

REACTIONS (1)
  - DEATH [None]
